FAERS Safety Report 11801266 (Version 2)
Quarter: 2015Q4

REPORT INFORMATION
  Report Type: Spontaneous
  Country: US (occurrence: US)
  Receive Date: 20151204
  Receipt Date: 20151228
  Transmission Date: 20160305
  Serious: Yes (Other)
  Sender: FDA-Public Use
  Company Number: US-PFIZER INC-2015408836

PATIENT
  Age: 54 Year
  Sex: Female

DRUGS (3)
  1. LAMICTAL [Concomitant]
     Active Substance: LAMOTRIGINE
     Dosage: 200 MG, 1X/DAY
     Dates: start: 199705, end: 201506
  2. LYRICA [Suspect]
     Active Substance: PREGABALIN
     Indication: FIBROMYALGIA
     Dosage: UNK, 2X/DAY
     Dates: start: 201211
  3. LITHIUM. [Concomitant]
     Active Substance: LITHIUM
     Dosage: 600 MG, 3X/DAY
     Dates: start: 199705, end: 201506

REACTIONS (3)
  - Depression [Unknown]
  - Suicidal ideation [Unknown]
  - Crying [Unknown]
